FAERS Safety Report 9851674 (Version 1)
Quarter: 2014Q1

REPORT INFORMATION
  Report Type: Spontaneous
  Country: CN (occurrence: CN)
  Receive Date: 20140129
  Receipt Date: 20140129
  Transmission Date: 20141002
  Serious: Yes (Death)
  Sender: FDA-Public Use
  Company Number: CN-ROCHE-1335807

PATIENT
  Sex: Male

DRUGS (2)
  1. CEFTRIAXONE SODIUM [Suspect]
     Indication: CHEST PAIN
     Route: 042
     Dates: start: 20131004
  2. NORMAL SALINE [Concomitant]
     Route: 065

REACTIONS (2)
  - Drug ineffective [Fatal]
  - Coma [Fatal]
